FAERS Safety Report 12324633 (Version 1)
Quarter: 2016Q2

REPORT INFORMATION
  Report Type: Spontaneous
  Country: US (occurrence: US)
  Receive Date: 20160502
  Receipt Date: 20160502
  Transmission Date: 20160815
  Serious: No
  Sender: FDA-Public Use
  Company Number: US-ABBVIE-16P-163-1545123-00

PATIENT
  Age: 60 Year
  Sex: Male

DRUGS (4)
  1. ANDROGEL [Suspect]
     Active Substance: TESTOSTERONE
     Dosage: 1 PUMP DAILY
     Route: 061
     Dates: start: 201510, end: 201510
  2. ANDROGEL [Suspect]
     Active Substance: TESTOSTERONE
     Dosage: 1 PUMP DAILY
     Route: 061
     Dates: start: 201512
  3. ANDROGEL [Suspect]
     Active Substance: TESTOSTERONE
     Indication: HYPOGONADISM
     Dosage: 2 PUMPS DAILY
     Route: 061
     Dates: start: 201508, end: 201510
  4. ANDROGEL [Suspect]
     Active Substance: TESTOSTERONE
     Dosage: 1/2 PUMP TO EACH SHOULDER DAILY
     Route: 061
     Dates: start: 201510, end: 201512

REACTIONS (4)
  - Blood testosterone abnormal [Not Recovered/Not Resolved]
  - Incorrect dose administered [Not Recovered/Not Resolved]
  - Blood testosterone increased [Unknown]
  - Laboratory test interference [Not Recovered/Not Resolved]

NARRATIVE: CASE EVENT DATE: 201510
